FAERS Safety Report 5127170-4 (Version None)
Quarter: 2006Q4

REPORT INFORMATION
  Report Type: 
  Country: None (occurrence: None)
  Receive Date: 20061010
  Receipt Date: 20060921
  Transmission Date: 20070319
  Serious: Yes (Other)
  Sender: FDA-Public Use
  Company Number: 30209

PATIENT
  Age: 32 Year
  Sex: Male

DRUGS (4)
  1. ALDARA [Suspect]
     Indication: ANOGENITAL WARTS
     Dosage: (1 SACHET, 2 IN 1 WEEK(S, TOPICAL
     Route: 061
     Dates: start: 20060620
  2. PROTONIX [Suspect]
     Indication: GASTROOESOPHAGITIS
  3. CONDYLOX [Suspect]
     Indication: ANOGENITAL WARTS
     Dosage: TOPICAL
     Route: 061
  4. LIQUID NITROGEN [Suspect]
     Indication: ANOGENITAL WARTS
     Dosage: TOPICAL
     Route: 061
     Dates: start: 20060620

REACTIONS (2)
  - ALANINE AMINOTRANSFERASE INCREASED [None]
  - ASPARTATE AMINOTRANSFERASE INCREASED [None]
